FAERS Safety Report 22204208 (Version 1)
Quarter: 2023Q2

REPORT INFORMATION
  Report Type: Spontaneous
  Country: US (occurrence: US)
  Receive Date: 20230412
  Receipt Date: 20230412
  Transmission Date: 20230722
  Serious: No
  Sender: FDA-Public Use
  Company Number: US-009507513-2304USA000592

PATIENT
  Age: 87 Year
  Sex: Male

DRUGS (1)
  1. NOXAFIL [Suspect]
     Active Substance: POSACONAZOLE
     Indication: Haematological infection
     Dosage: 300 MILLIGRAM, BID

REACTIONS (1)
  - Product use in unapproved indication [Unknown]
